FAERS Safety Report 7710994-4 (Version None)
Quarter: 2011Q3

REPORT INFORMATION
  Report Type: 
  Country: None (occurrence: None)
  Receive Date: 20110825
  Receipt Date: 20110816
  Transmission Date: 20111222
  Serious: Yes (Other)
  Sender: FDA-Public Use
  Company Number: US-ASTRAZENECA-2011SE32540

PATIENT
  Sex: Female

DRUGS (10)
  1. NEXIUM [Suspect]
     Route: 048
  2. FOLIC ACID [Concomitant]
     Route: 048
  3. HYDROCORTISONE [Concomitant]
     Dosage: PRN
     Route: 061
  4. PREDNISONE [Concomitant]
     Route: 048
  5. ACTONEL [Concomitant]
     Route: 048
  6. HYDROCORTISONE [Concomitant]
     Dosage: 1 SUPP PR BID
     Route: 061
  7. AMLODIPINE [Concomitant]
     Route: 048
  8. CALCIUM-VITAMIN D [Concomitant]
     Dosage: 1 TABLET DAILY
     Route: 048
  9. LOSARTAN [Concomitant]
     Route: 048
  10. LOVASTATIN [Concomitant]
     Route: 048

REACTIONS (1)
  - COLON CANCER [None]
